FAERS Safety Report 18186180 (Version 1)
Quarter: 2020Q3

REPORT INFORMATION
  Report Type: Spontaneous
  Country: US (occurrence: US)
  Receive Date: 20200824
  Receipt Date: 20200824
  Transmission Date: 20201103
  Serious: Yes (Other)
  Sender: FDA-Public Use
  Company Number: US-SA-2020SA077942

PATIENT

DRUGS (3)
  1. DUPIXENT [Suspect]
     Active Substance: DUPILUMAB
     Indication: POLYNEUROPATHY
  2. NUCALA [Concomitant]
     Active Substance: MEPOLIZUMAB
     Dosage: UNK
     Route: 065
  3. DUPIXENT [Suspect]
     Active Substance: DUPILUMAB
     Indication: ASTHMA
     Dosage: 300 MG, QOW
     Route: 058
     Dates: start: 2019

REACTIONS (14)
  - Condition aggravated [Unknown]
  - Weight decreased [Unknown]
  - Reflux gastritis [Unknown]
  - Neuropathy peripheral [Unknown]
  - Malaise [Unknown]
  - Product use in unapproved indication [Unknown]
  - Nausea [Unknown]
  - Feeling abnormal [Unknown]
  - Nervous system disorder [Unknown]
  - Fatigue [Unknown]
  - Gastrointestinal disorder [Unknown]
  - Autoimmune neuropathy [Unknown]
  - Vagus nerve disorder [Unknown]
  - Dysphagia [Unknown]

NARRATIVE: CASE EVENT DATE: 202006
